FAERS Safety Report 24765774 (Version 1)
Quarter: 2024Q4

REPORT INFORMATION
  Report Type: Report from Study
  Country: CA (occurrence: CA)
  Receive Date: 20241223
  Receipt Date: 20241223
  Transmission Date: 20250115
  Serious: Yes (Hospitalization)
  Sender: ALEXION PHARMACEUTICALS
  Company Number: CA-AstraZeneca-CH-00772454A

PATIENT

DRUGS (12)
  1. CAPIVASERTIB [Suspect]
     Active Substance: CAPIVASERTIB
     Indication: Breast cancer
     Dosage: 400 MILLIGRAM, BID
  2. CAPIVASERTIB [Suspect]
     Active Substance: CAPIVASERTIB
     Dosage: 400 MILLIGRAM, BID
     Route: 048
  3. CAPIVASERTIB [Suspect]
     Active Substance: CAPIVASERTIB
     Dosage: 400 MILLIGRAM, BID
  4. CAPIVASERTIB [Suspect]
     Active Substance: CAPIVASERTIB
     Dosage: 400 MILLIGRAM, BID
     Route: 048
  5. FASLODEX [Suspect]
     Active Substance: FULVESTRANT
  6. FASLODEX [Suspect]
     Active Substance: FULVESTRANT
     Route: 030
  7. FASLODEX [Suspect]
     Active Substance: FULVESTRANT
  8. FASLODEX [Suspect]
     Active Substance: FULVESTRANT
     Route: 030
  9. EPINEPHRINE [Concomitant]
     Active Substance: EPINEPHRINE
     Route: 065
  10. EPINEPHRINE [Concomitant]
     Active Substance: EPINEPHRINE
     Route: 065
  11. EPINEPHRINE [Concomitant]
     Active Substance: EPINEPHRINE
     Route: 065
  12. EPINEPHRINE [Concomitant]
     Active Substance: EPINEPHRINE
     Route: 065

REACTIONS (3)
  - Hypersensitivity [Unknown]
  - Throat tightness [Unknown]
  - Vomiting [Unknown]
